FAERS Safety Report 7445401-2 (Version None)
Quarter: 2011Q2

REPORT INFORMATION
  Report Type: 
  Country: None (occurrence: None)
  Receive Date: 20110429
  Receipt Date: 20110419
  Transmission Date: 20111010
  Serious: Yes (Death, Hospitalization)
  Sender: FDA-Public Use
  Company Number: US-BAXTER-2011BH010159

PATIENT
  Age: 77 Year
  Sex: Male

DRUGS (1)
  1. DIANEAL [Suspect]
     Indication: PERITONEAL DIALYSIS
     Route: 033
     Dates: end: 20110406

REACTIONS (6)
  - DEATH [None]
  - BRAIN INJURY [None]
  - REFUSAL OF TREATMENT BY PATIENT [None]
  - FALL [None]
  - RENAL FAILURE CHRONIC [None]
  - OVERDOSE [None]
